FAERS Safety Report 14540351 (Version 2)
Quarter: 2018Q2

REPORT INFORMATION
  Report Type: Spontaneous
  Country: IT (occurrence: IT)
  Receive Date: 20180216
  Receipt Date: 20180416
  Transmission Date: 20180711
  Serious: Yes (Hospitalization)
  Sender: FDA-Public Use
  Company Number: IT-PFIZER INC-2018064159

PATIENT
  Age: 68 Year
  Sex: Female

DRUGS (3)
  1. RELPAX [Suspect]
     Active Substance: ELETRIPTAN HYDROBROMIDE
     Indication: HEADACHE
     Dosage: 20 DF, UNK
     Route: 048
     Dates: start: 20171213, end: 20180123
  2. SEREUPIN [Concomitant]
     Active Substance: PAROXETINE HYDROCHLORIDE
     Dosage: UNK
  3. RATACAND [Concomitant]
     Active Substance: CANDESARTAN
     Dosage: UNK

REACTIONS (2)
  - Drug abuse [Recovered/Resolved]
  - Hepatic enzyme increased [Recovered/Resolved]

NARRATIVE: CASE EVENT DATE: 20180123
